FAERS Safety Report 8264596-4 (Version None)
Quarter: 2012Q2

REPORT INFORMATION
  Report Type: 
  Country: None (occurrence: None)
  Receive Date: 20120406
  Receipt Date: 20120328
  Transmission Date: 20120825
  Serious: Yes (Hospitalization)
  Sender: FDA-Public Use
  Company Number: DE-UCBSA-054290

PATIENT
  Sex: Male

DRUGS (1)
  1. CIMZIA [Suspect]
     Dosage: TOTAL OF 4 INJECTIONS
     Route: 058

REACTIONS (3)
  - INFECTION [None]
  - HYPERSENSITIVITY [None]
  - PYREXIA [None]
